FAERS Safety Report 24257205 (Version 2)
Quarter: 2025Q4

REPORT INFORMATION
  Report Type: Spontaneous
  Country: GB (occurrence: GB)
  Receive Date: 20240828
  Receipt Date: 20251117
  Transmission Date: 20260117
  Serious: Yes (Other)
  Sender: ABBVIE
  Company Number: None

PATIENT
  Age: 33 Year
  Sex: Female

DRUGS (3)
  1. ADALIMUMAB [Suspect]
     Active Substance: ADALIMUMAB
     Indication: Rheumatoid arthritis
     Route: 058
  2. FOLIC ACID [Concomitant]
     Active Substance: FOLIC ACID
     Indication: Vitamin supplementation
  3. DESOGESTREL [Suspect]
     Active Substance: DESOGESTREL
     Indication: Contraception
     Dosage: CONTRACEPTIVE PILL
     Route: 065
     Dates: start: 2021

REACTIONS (5)
  - Abortion induced [Unknown]
  - Maternal exposure during pregnancy [Unknown]
  - Drug interaction [Unknown]
  - Pregnancy on contraceptive [Unknown]
  - Drug ineffective [Unknown]
